FAERS Safety Report 23103591 (Version 1)
Quarter: 2023Q4

REPORT INFORMATION
  Report Type: Report from Study
  Country: US (occurrence: US)
  Receive Date: 20231025
  Receipt Date: 20231025
  Transmission Date: 20240110
  Serious: Yes (Hospitalization)
  Sender: FDA-Public Use
  Company Number: US-GILEAD-2023-0620950

PATIENT
  Sex: Male

DRUGS (15)
  1. AZTREONAM LYSINE [Suspect]
     Active Substance: AZTREONAM LYSINE
     Indication: Lung disorder
     Dosage: 75 MG (1 VIAL) VIA ALTERA NEBULIZER THREE TIMES DAILY, ALTERNATING MONTHS WITH COLISTIN
     Route: 055
  2. SINGULAIR [Concomitant]
     Active Substance: MONTELUKAST SODIUM
  3. SENNA LEAF [Concomitant]
     Active Substance: SENNA LEAF
  4. ACETYLCYSTEINE [Concomitant]
     Active Substance: ACETYLCYSTEINE
  5. COLISTIMETHATE SODIUM [Concomitant]
     Active Substance: COLISTIMETHATE SODIUM
  6. GABAPENTIN [Concomitant]
     Active Substance: GABAPENTIN
  7. FAMOTIDINE [Concomitant]
     Active Substance: FAMOTIDINE
  8. SODIUM CHLORIDE [Concomitant]
     Active Substance: SODIUM CHLORIDE
  9. LEVOCARNITINE [Concomitant]
     Active Substance: LEVOCARNITINE
  10. ONFI [Concomitant]
     Active Substance: CLOBAZAM
  11. BACLOFEN [Concomitant]
     Active Substance: BACLOFEN
  12. GLYCOPYRROLATE [Concomitant]
     Active Substance: GLYCOPYRROLATE
  13. LACTOBACILLUS [LACTOBACILLUS ACIDOPHILUS] [Concomitant]
  14. MELATONIN [Concomitant]
     Active Substance: MELATONIN
  15. ZYRTEC [Concomitant]
     Active Substance: CETIRIZINE HYDROCHLORIDE

REACTIONS (2)
  - Infection [Unknown]
  - Off label use [Not Recovered/Not Resolved]
